FAERS Safety Report 12489168 (Version 1)
Quarter: 2016Q2

REPORT INFORMATION
  Report Type: Report from Study
  Country: BR (occurrence: BR)
  Receive Date: 20160622
  Receipt Date: 20160622
  Transmission Date: 20160815
  Serious: Yes (Hospitalization, Other)
  Sender: FDA-Public Use
  Company Number: BR-JNJFOC-20160615976

PATIENT
  Sex: Female

DRUGS (3)
  1. SIMPONI [Suspect]
     Active Substance: GOLIMUMAB
     Indication: ANKYLOSING SPONDYLITIS
     Route: 058
     Dates: start: 20150203
  2. TECNOMET [Concomitant]
     Active Substance: METHOTREXATE
     Route: 065
  3. LIRICA [Concomitant]
     Active Substance: PREGABALIN
     Route: 065

REACTIONS (3)
  - Infection [Unknown]
  - Tooth abscess [Unknown]
  - Gastrointestinal disorder [Unknown]

NARRATIVE: CASE EVENT DATE: 2015
